FAERS Safety Report 20356783 (Version 1)
Quarter: 2022Q1

REPORT INFORMATION
  Report Type: Spontaneous
  Country: US (occurrence: None)
  Receive Date: 20220119
  Receipt Date: 20220119
  Transmission Date: 20220423
  Serious: Yes (Death)
  Sender: FDA-Public Use
  Company Number: None

PATIENT
  Age: 29 Year
  Weight: 45 kg

DRUGS (1)
  1. MIRTAZAPINE [Suspect]
     Active Substance: MIRTAZAPINE
     Indication: Product used for unknown indication
     Dates: start: 20210201, end: 20210507

REACTIONS (3)
  - Completed suicide [None]
  - Alcohol use [None]
  - Trans-sexualism [None]

NARRATIVE: CASE EVENT DATE: 20210509
